FAERS Safety Report 6397768-4 (Version None)
Quarter: 2009Q4

REPORT INFORMATION
  Report Type: 
  Country: None (occurrence: None)
  Receive Date: 20091007
  Receipt Date: 20090923
  Transmission Date: 20100525
  Serious: Yes (Hospitalization)
  Sender: FDA-Public Use
  Company Number: 390470

PATIENT
  Age: 63 Year
  Sex: Male

DRUGS (9)
  1. MORPHINE SULFATE             AMPUL (MORPHINE) [Suspect]
     Indication: PAIN
     Dosage: INTRATHECAL
     Route: 037
  2. BACLOFEN [Suspect]
     Indication: PAIN
     Dosage: INTRATHECAL
     Route: 037
  3. PROZAC [Concomitant]
  4. CYMBALTA [Concomitant]
  5. (LOVASTATIN RATIOPHARM) [Concomitant]
  6. (FUROSEMIDE) [Concomitant]
  7. TEMAZEPAM [Concomitant]
  8. SULINDAC [Concomitant]
  9. REBIF [Concomitant]

REACTIONS (6)
  - ABASIA [None]
  - DEVICE MALFUNCTION [None]
  - HALLUCINATION [None]
  - HYPERHIDROSIS [None]
  - MULTIPLE SCLEROSIS [None]
  - WITHDRAWAL SYNDROME [None]
